FAERS Safety Report 4834690-6 (Version None)
Quarter: 2005Q4

REPORT INFORMATION
  Report Type: 
  Country: None (occurrence: None)
  Receive Date: 20051122
  Receipt Date: 20050623
  Transmission Date: 20060501
  Serious: No
  Sender: FDA-Public Use
  Company Number: US-BRISTOL-MYERS SQUIBB COMPANY-13014048

PATIENT
  Age: 72 Year
  Sex: Male
  Weight: 120 kg

DRUGS (2)
  1. PRAVACHOL [Suspect]
     Indication: BLOOD CHOLESTEROL INCREASED
     Route: 048
     Dates: start: 20050104, end: 20050201
  2. MULTI-VITAMIN [Concomitant]

REACTIONS (8)
  - DIZZINESS [None]
  - INCREASED UPPER AIRWAY SECRETION [None]
  - NAUSEA [None]
  - PHARYNGEAL OEDEMA [None]
  - RASH [None]
  - RECTAL HAEMORRHAGE [None]
  - SWOLLEN TONGUE [None]
  - VOMITING [None]
